FAERS Safety Report 14236436 (Version 2)
Quarter: 2017Q4

REPORT INFORMATION
  Report Type: Report from Study
  Country: JP (occurrence: JP)
  Receive Date: 20171129
  Receipt Date: 20171221
  Transmission Date: 20180321
  Serious: Yes (Hospitalization, Other)
  Sender: FDA-Public Use
  Company Number: JP-INCYTE CORPORATION-2017IN009953

PATIENT

DRUGS (1)
  1. JAKAVI [Suspect]
     Active Substance: RUXOLITINIB
     Indication: MYELOFIBROSIS
     Dosage: 2.5 MG, BID
     Route: 048
     Dates: start: 20170407, end: 201711

REACTIONS (1)
  - Leukaemia [Unknown]
